FAERS Safety Report 6999281-X (Version None)
Quarter: 2010Q3

REPORT INFORMATION
  Report Type: 
  Country: None (occurrence: None)
  Receive Date: 20100920
  Receipt Date: 20100617
  Transmission Date: 20110219
  Serious: No
  Sender: FDA-Public Use
  Company Number: US-ASTRAZENECA-2010SE28485

PATIENT
  Sex: Female
  Weight: 99.8 kg

DRUGS (1)
  1. SEROQUEL [Suspect]
     Indication: BIPOLAR DISORDER
     Route: 048

REACTIONS (8)
  - AFFECT LABILITY [None]
  - BIPOLAR DISORDER [None]
  - CRYING [None]
  - DRUG INEFFECTIVE [None]
  - NEGATIVE THOUGHTS [None]
  - PARANOIA [None]
  - SPEECH DISORDER [None]
  - THINKING ABNORMAL [None]
